FAERS Safety Report 8180025-3 (Version None)
Quarter: 2012Q1

REPORT INFORMATION
  Report Type: 
  Country: None (occurrence: None)
  Receive Date: 20120302
  Receipt Date: 20120228
  Transmission Date: 20120608
  Serious: Yes (Life-Threatening, Hospitalization)
  Sender: FDA-Public Use
  Company Number: US-ABBOTT-12P-163-0909423-00

PATIENT
  Age: 55 Year
  Sex: Female

DRUGS (3)
  1. RITONAVIR [Suspect]
     Indication: HIV INFECTION
     Route: 048
     Dates: start: 20100330, end: 20120210
  2. ATAZANAVIR [Concomitant]
     Indication: PRODUCT USED FOR UNKNOWN INDICATION
     Route: 048
     Dates: start: 20100330, end: 20120209
  3. EMTRICITABINE/TENOFOVIR DISOPROXIL FUMARATE [Concomitant]
     Indication: PRODUCT USED FOR UNKNOWN INDICATION
     Dosage: 200/300 MG ONCE A DAY
     Route: 048
     Dates: start: 20100330, end: 20120210

REACTIONS (5)
  - RENAL FAILURE [None]
  - APPENDICITIS PERFORATED [None]
  - SEPTIC SHOCK [None]
  - MECHANICAL VENTILATION [None]
  - ABDOMINAL PAIN LOWER [None]
